FAERS Safety Report 9967962 (Version 1)
Quarter: 2014Q1

REPORT INFORMATION
  Report Type: Report from Study
  Country: US (occurrence: US)
  Receive Date: 20140306
  Receipt Date: 20140306
  Transmission Date: 20141002
  Serious: No
  Sender: FDA-Public Use
  Company Number: US-ABBVIE-13P-163-1144937-00

PATIENT
  Sex: Female

DRUGS (22)
  1. METFORMIN [Concomitant]
     Indication: PRODUCT USED FOR UNKNOWN INDICATION
  2. LYRICA [Concomitant]
     Indication: MUSCLE SPASMS
  3. FOLIC ACID [Concomitant]
     Indication: PRODUCT USED FOR UNKNOWN INDICATION
     Dosage: DAILY
  4. ST JOHN^S WART [Concomitant]
     Indication: DEPRESSION
  5. DIOVAN [Concomitant]
     Indication: BLOOD PRESSURE
     Dosage: 160 MG DAILY
  6. JANUVIA [Concomitant]
     Indication: PRODUCT USED FOR UNKNOWN INDICATION
     Dosage: 100 MG DAILY
  7. PRAMIPEXOLE [Concomitant]
     Indication: PARKINSON^S DISEASE
  8. SALINE [Concomitant]
     Indication: NASAL DISORDER
  9. OPTIVAR [Concomitant]
     Indication: PRODUCT USED FOR UNKNOWN INDICATION
  10. POTASSIUM [Concomitant]
     Indication: PRODUCT USED FOR UNKNOWN INDICATION
  11. WATER PILLS [Concomitant]
     Indication: PRODUCT USED FOR UNKNOWN INDICATION
  12. OXYCODONE [Concomitant]
     Indication: PAIN
  13. TRIMETHAZONE [Concomitant]
     Indication: PAIN
  14. ALLERGY SHOTS [Concomitant]
     Indication: HYPERSENSITIVITY
     Route: 050
  15. UNKNOWN MEDICATION [Concomitant]
     Indication: PSORIASIS
  16. HUMIRA [Suspect]
     Indication: PSORIASIS
     Dates: start: 2011
  17. HUMIRA [Suspect]
     Indication: PSORIATIC ARTHROPATHY
  18. OMEPRAZOLE [Concomitant]
     Indication: BARRETT^S OESOPHAGUS
  19. LIPITOR [Concomitant]
     Indication: BLOOD CHOLESTEROL
     Dosage: 20 MG DAILY
  20. MONTELUKAST [Concomitant]
     Indication: PRODUCT USED FOR UNKNOWN INDICATION
  21. VITAMIN B6 [Concomitant]
     Indication: PRODUCT USED FOR UNKNOWN INDICATION
  22. PIOGLITAZONE [Concomitant]
     Indication: PRODUCT USED FOR UNKNOWN INDICATION

REACTIONS (4)
  - Sleep disorder [Not Recovered/Not Resolved]
  - Drug ineffective [Not Recovered/Not Resolved]
  - Depression [Not Recovered/Not Resolved]
  - Sinusitis [Not Recovered/Not Resolved]
